FAERS Safety Report 18172273 (Version 3)
Quarter: 2020Q4

REPORT INFORMATION
  Report Type: Spontaneous
  Country: CA (occurrence: CA)
  Receive Date: 20200819
  Receipt Date: 20201209
  Transmission Date: 20210113
  Serious: Yes (Hospitalization, Other)
  Sender: FDA-Public Use
  Company Number: CA-009507513-1907CAN002395

PATIENT
  Age: 61 Year
  Sex: Female
  Weight: 70 kg

DRUGS (91)
  1. ALTACE [Suspect]
     Active Substance: RAMIPRIL
     Indication: PRODUCT USED FOR UNKNOWN INDICATION
     Dosage: UNK
     Route: 065
  2. NEXIUM I.V. [Suspect]
     Active Substance: ESOMEPRAZOLE SODIUM
     Dosage: DOSAGE FORM: NOT SPECIFIED
     Route: 065
  3. RITUXIMAB. [Suspect]
     Active Substance: RITUXIMAB
     Dosage: 1000 MILLIGRAM
     Route: 042
  4. RITUXIMAB. [Suspect]
     Active Substance: RITUXIMAB
     Dosage: UNK
     Route: 042
  5. RITUXIMAB. [Suspect]
     Active Substance: RITUXIMAB
     Dosage: DOSE: 1000.0 MILLIGRAM
     Route: 042
  6. STEMETIL (PROCHLORPERAZINE) [Suspect]
     Active Substance: PROCHLORPERAZINE
     Indication: VOMITING
     Dosage: UNK
     Route: 065
  7. ESOMEPRAZOLE MAGNESIUM. [Suspect]
     Active Substance: ESOMEPRAZOLE MAGNESIUM
     Dosage: DOSAGE FORM: NOT SPECIFIED
     Route: 048
  8. APO-HYDRO [Concomitant]
     Active Substance: HYDROCHLOROTHIAZIDE
     Dosage: UNK
     Route: 065
  9. LANTUS [Concomitant]
     Active Substance: INSULIN GLARGINE
     Route: 058
  10. ACETAMINOPHEN. [Suspect]
     Active Substance: ACETAMINOPHEN
     Indication: PRODUCT USED FOR UNKNOWN INDICATION
     Dosage: 650 MILLIGRAM 1 EVERY 1 DAY
     Route: 048
  11. AMLODIPINE BESYLATE. [Suspect]
     Active Substance: AMLODIPINE BESYLATE
     Dosage: UNK
     Route: 065
  12. ATACAND [Suspect]
     Active Substance: CANDESARTAN CILEXETIL
     Dosage: UNK
     Route: 048
  13. ATACAND [Suspect]
     Active Substance: CANDESARTAN CILEXETIL
     Dosage: UNK
     Route: 048
  14. NEXIUM I.V. [Suspect]
     Active Substance: ESOMEPRAZOLE SODIUM
     Indication: PRODUCT USED FOR UNKNOWN INDICATION
     Dosage: UNK
     Route: 042
  15. CANDESARTAN CILEXETIL. [Suspect]
     Active Substance: CANDESARTAN CILEXETIL
     Indication: HYPERTENSION
     Route: 065
  16. CANDESARTAN CILEXETIL. [Suspect]
     Active Substance: CANDESARTAN CILEXETIL
     Route: 065
  17. ESOMEPRAZOLE MAGNESIUM. [Suspect]
     Active Substance: ESOMEPRAZOLE MAGNESIUM
     Route: 048
  18. ELTROXIN [Concomitant]
     Active Substance: LEVOTHYROXINE
  19. METHYLPREDNISOLONE ACETATE. [Concomitant]
     Active Substance: METHYLPREDNISOLONE ACETATE
     Indication: PRODUCT USED FOR UNKNOWN INDICATION
  20. PRINIVIL [Suspect]
     Active Substance: LISINOPRIL
     Dosage: UNK
     Route: 048
  21. PRINIVIL [Suspect]
     Active Substance: LISINOPRIL
     Dosage: UNK
     Route: 048
  22. ALTACE [Suspect]
     Active Substance: RAMIPRIL
     Dosage: UNK
     Route: 065
  23. METHYLPREDNISOLONE SODIUM SUCCINATE. [Suspect]
     Active Substance: METHYLPREDNISOLONE SODIUM SUCCINATE
     Indication: PREMEDICATION
     Dosage: DOSE: 100.0 MILLIGRAM, FREQUENCY: 1 EVERY 1 DAYS
     Route: 042
  24. NEXIUM I.V. [Suspect]
     Active Substance: ESOMEPRAZOLE SODIUM
     Dosage: UNK
     Route: 042
  25. RITUXIMAB. [Suspect]
     Active Substance: RITUXIMAB
     Indication: RHEUMATOID ARTHRITIS
     Dosage: UNK
     Route: 042
  26. DIAMICRON [Suspect]
     Active Substance: GLICLAZIDE
     Indication: DIABETES MELLITUS
     Dosage: UNK
     Route: 065
  27. DIAMICRON [Suspect]
     Active Substance: GLICLAZIDE
     Indication: BLOOD PRESSURE MEASUREMENT
     Dosage: UNK
     Route: 065
  28. DIAMICRON [Suspect]
     Active Substance: GLICLAZIDE
     Dosage: UNK
     Route: 048
  29. ONDANSETRON [Suspect]
     Active Substance: ONDANSETRON
     Indication: PRODUCT USED FOR UNKNOWN INDICATION
     Dosage: DOSAGE FORM: NOT SPECIFIED
     Route: 065
  30. DOMPERIDONE [Concomitant]
     Active Substance: DOMPERIDONE
     Dosage: UNK
     Route: 048
  31. ALTACE [Suspect]
     Active Substance: RAMIPRIL
     Dosage: DOSAGE FORM: NOT SPECIFIED
     Route: 048
  32. AMLODIPINE BESYLATE. [Suspect]
     Active Substance: AMLODIPINE BESYLATE
     Indication: PRODUCT USED FOR UNKNOWN INDICATION
     Route: 065
  33. ATACAND [Suspect]
     Active Substance: CANDESARTAN CILEXETIL
     Dosage: UNK
     Route: 065
  34. MORPHINE SULFATE. [Suspect]
     Active Substance: MORPHINE SULFATE
     Dosage: DOSAGE FORM: NOT SPECIFIED
     Route: 065
  35. RITUXIMAB. [Suspect]
     Active Substance: RITUXIMAB
     Dosage: UNK
     Route: 042
  36. SYNTHROID [Suspect]
     Active Substance: LEVOTHYROXINE SODIUM
     Dosage: DOSAGE FORM: NOT SPECIFIED
     Route: 065
  37. ZOFRAN [Suspect]
     Active Substance: ONDANSETRON HYDROCHLORIDE
     Route: 065
  38. GLICLAZIDE [Suspect]
     Active Substance: GLICLAZIDE
     Indication: BLOOD PRESSURE MEASUREMENT
     Route: 065
  39. APO-HYDRO [Concomitant]
     Active Substance: HYDROCHLOROTHIAZIDE
     Route: 065
  40. JANUVIA [Concomitant]
     Active Substance: SITAGLIPTIN PHOSPHATE
     Indication: PRODUCT USED FOR UNKNOWN INDICATION
     Dosage: DOSAGE FORM: NOT SPECIFIED
  41. PANTOPRAZOLE SODIUM. [Concomitant]
     Active Substance: PANTOPRAZOLE SODIUM
  42. PRINIVIL [Suspect]
     Active Substance: LISINOPRIL
     Indication: HYPERTENSION
     Route: 048
  43. AMLODIPINE BESYLATE. [Suspect]
     Active Substance: AMLODIPINE BESYLATE
     Dosage: UNK
     Route: 065
  44. ATACAND [Suspect]
     Active Substance: CANDESARTAN CILEXETIL
     Indication: HYPERTENSION
     Dosage: UNK
     Route: 048
  45. MORPHINE SULFATE. [Suspect]
     Active Substance: MORPHINE SULFATE
     Dosage: DOSAGE FORM: NOT SPECIFIED
     Route: 065
  46. SYNTHROID [Suspect]
     Active Substance: LEVOTHYROXINE SODIUM
     Dosage: DOSAGE FORM: NOT SPECIFIED
     Route: 065
  47. ZOFRAN [Suspect]
     Active Substance: ONDANSETRON HYDROCHLORIDE
     Indication: PRODUCT USED FOR UNKNOWN INDICATION
     Route: 065
  48. DIAMICRON [Suspect]
     Active Substance: GLICLAZIDE
     Dosage: UNK
     Route: 065
  49. GLICLAZIDE [Suspect]
     Active Substance: GLICLAZIDE
     Route: 065
  50. DEPO-MEDROL [Concomitant]
     Active Substance: METHYLPREDNISOLONE ACETATE
     Dosage: DOSAGE FORM: SUSPENSION INTRA-ARTICULAR
  51. HUMALOG [Concomitant]
     Active Substance: INSULIN LISPRO
     Route: 065
  52. LEVEMIR [Concomitant]
     Active Substance: INSULIN DETEMIR
     Route: 058
  53. TYLENOL [Concomitant]
     Active Substance: ACETAMINOPHEN
     Dosage: 650 MILLIGRAM; DOSAGE FORM: NOT SPECIFIED
     Route: 048
  54. TYLENOL [Concomitant]
     Active Substance: ACETAMINOPHEN
     Dosage: 650 MILLIGRAM
     Route: 048
  55. NEXIUM I.V. [Suspect]
     Active Substance: ESOMEPRAZOLE SODIUM
     Dosage: UNK
     Route: 042
  56. PREDNISONE. [Suspect]
     Active Substance: PREDNISONE
     Dosage: DOSAGE FORM: NOT SPECIFIED
     Route: 065
  57. PREDNISONE. [Suspect]
     Active Substance: PREDNISONE
     Dosage: DOSAGE FORM: NOT SPECIFIED
     Route: 065
  58. DIAMICRON [Suspect]
     Active Substance: GLICLAZIDE
     Dosage: UNK
     Route: 065
  59. CANDESARTAN CILEXETIL. [Suspect]
     Active Substance: CANDESARTAN CILEXETIL
     Route: 065
  60. GLICLAZIDE [Suspect]
     Active Substance: GLICLAZIDE
     Indication: DIABETES MELLITUS
     Route: 065
  61. LEVOTHYROXINE SODIUM. [Suspect]
     Active Substance: LEVOTHYROXINE SODIUM
     Indication: PRODUCT USED FOR UNKNOWN INDICATION
     Route: 065
  62. LEVOTHYROXINE SODIUM. [Suspect]
     Active Substance: LEVOTHYROXINE SODIUM
     Dosage: UNK
     Route: 065
  63. LEVEMIR [Concomitant]
     Active Substance: INSULIN DETEMIR
     Route: 058
  64. ROSUVASTATIN CALCIUM. [Concomitant]
     Active Substance: ROSUVASTATIN CALCIUM
  65. GRAVOL [Suspect]
     Active Substance: DIMENHYDRINATE
     Indication: PREMEDICATION
     Dosage: DOSE: 50.0 MILLIGRAM, DOSAGE FORM: NOT SPECIFIED
     Route: 065
  66. STEMETIL (PROCHLORPERAZINE) [Suspect]
     Active Substance: PROCHLORPERAZINE
     Dosage: UNK
     Route: 065
  67. SYNTHROID [Suspect]
     Active Substance: LEVOTHYROXINE SODIUM
     Indication: PRODUCT USED FOR UNKNOWN INDICATION
     Dosage: UNK
     Route: 065
  68. DIAMICRON [Suspect]
     Active Substance: GLICLAZIDE
     Dosage: UNK
     Route: 065
  69. ESOMEPRAZOLE MAGNESIUM. [Suspect]
     Active Substance: ESOMEPRAZOLE MAGNESIUM
     Dosage: DOSAGE FORM: NOT SPECIFIED
     Route: 065
  70. ONDANSETRON [Suspect]
     Active Substance: ONDANSETRON
     Dosage: UNK
     Route: 065
  71. PROCHLORPERAZINE MALEATE. [Suspect]
     Active Substance: PROCHLORPERAZINE MALEATE
     Route: 065
  72. EZETROL [Concomitant]
     Active Substance: EZETIMIBE
  73. EZETROL [Concomitant]
     Active Substance: EZETIMIBE
     Route: 048
  74. LYRICA [Concomitant]
     Active Substance: PREGABALIN
  75. ATACAND [Suspect]
     Active Substance: CANDESARTAN CILEXETIL
     Dosage: UNK
     Route: 065
  76. DIPHENHYDRAMINE HYDROCHLORIDE. [Suspect]
     Active Substance: DIPHENHYDRAMINE HYDROCHLORIDE
     Indication: PREMEDICATION
     Dosage: DOSE: 50.0 MILLIGRAM, FREQUENCY: 1 EVERY 1 DAYS
     Route: 048
  77. MORPHINE SULFATE. [Suspect]
     Active Substance: MORPHINE SULFATE
     Indication: PRODUCT USED FOR UNKNOWN INDICATION
     Route: 065
  78. PREDNISONE. [Suspect]
     Active Substance: PREDNISONE
     Indication: PRODUCT USED FOR UNKNOWN INDICATION
     Route: 065
  79. RITUXIMAB. [Suspect]
     Active Substance: RITUXIMAB
     Indication: SJOGREN^S SYNDROME
     Dosage: 1000 MILLIGRAM
     Route: 042
  80. STEMETIL (PROCHLORPERAZINE) [Suspect]
     Active Substance: PROCHLORPERAZINE
     Dosage: UNK
     Route: 065
  81. ZOFRAN [Suspect]
     Active Substance: ONDANSETRON HYDROCHLORIDE
     Route: 065
  82. ESOMEPRAZOLE MAGNESIUM. [Suspect]
     Active Substance: ESOMEPRAZOLE MAGNESIUM
     Indication: PRODUCT USED FOR UNKNOWN INDICATION
     Route: 048
  83. ESOMEPRAZOLE MAGNESIUM. [Suspect]
     Active Substance: ESOMEPRAZOLE MAGNESIUM
     Dosage: DOSAGE FORM: NOT SPECIFIED
     Route: 065
  84. LEVOTHYROXINE SODIUM. [Suspect]
     Active Substance: LEVOTHYROXINE SODIUM
     Dosage: DOSAGE FORM: NOT SPECIFIED
     Route: 065
  85. APO-HYDRO [Concomitant]
     Active Substance: HYDROCHLOROTHIAZIDE
     Dosage: UNK
     Route: 048
  86. DOMPERIDONE [Concomitant]
     Active Substance: DOMPERIDONE
  87. ELTROXIN [Concomitant]
     Active Substance: LEVOTHYROXINE
     Route: 048
  88. LANTUS [Concomitant]
     Active Substance: INSULIN GLARGINE
     Route: 058
  89. LANTUS [Concomitant]
     Active Substance: INSULIN GLARGINE
     Route: 058
  90. LEVEMIR [Concomitant]
     Active Substance: INSULIN DETEMIR
     Route: 058
  91. TYLENOL [Concomitant]
     Active Substance: ACETAMINOPHEN
     Dosage: 650 MILLIGRAM
     Route: 048

REACTIONS (15)
  - Blood pressure increased [Not Recovered/Not Resolved]
  - Nausea [Not Recovered/Not Resolved]
  - Asthenia [Not Recovered/Not Resolved]
  - Chest discomfort [Not Recovered/Not Resolved]
  - Gangrene [Not Recovered/Not Resolved]
  - Rheumatoid arthritis [Not Recovered/Not Resolved]
  - Angina pectoris [Not Recovered/Not Resolved]
  - Arthritis [Not Recovered/Not Resolved]
  - Fatigue [Not Recovered/Not Resolved]
  - Headache [Not Recovered/Not Resolved]
  - Cataract [Not Recovered/Not Resolved]
  - Arterial occlusive disease [Not Recovered/Not Resolved]
  - Gastric disorder [Not Recovered/Not Resolved]
  - Palpitations [Not Recovered/Not Resolved]
  - Sinusitis [Not Recovered/Not Resolved]
